FAERS Safety Report 8815247 (Version 1)
Quarter: 2012Q4

REPORT INFORMATION
  Report Type: 
  Country: US (occurrence: US)
  Receive Date: 20120928
  Receipt Date: 20120928
  Transmission Date: 20130627
  Serious: Yes (Hospitalization)
  Sender: FDA-Public Use
  Company Number: US-ELI_LILLY_AND_COMPANY-US201207008777

PATIENT
  Sex: Female
  Weight: 129.1 kg

DRUGS (1)
  1. ADCIRCA [Suspect]
     Dosage: UNK, unknown
     Route: 048
     Dates: start: 20120615

REACTIONS (2)
  - Oedema peripheral [Recovered/Resolved]
  - Oedema peripheral [None]
